FAERS Safety Report 7506075-5 (Version None)
Quarter: 2011Q2

REPORT INFORMATION
  Report Type: 
  Country: None (occurrence: None)
  Receive Date: 20110526
  Receipt Date: 20110523
  Transmission Date: 20111010
  Serious: Yes (Hospitalization)
  Sender: FDA-Public Use
  Company Number: AU-ROCHE-778822

PATIENT

DRUGS (1)
  1. ACTEMRA [Suspect]
     Route: 065

REACTIONS (1)
  - FRACTURE [None]
